FAERS Safety Report 21339537 (Version 1)
Quarter: 2022Q3

REPORT INFORMATION
  Report Type: Spontaneous
  Country: US (occurrence: US)
  Receive Date: 20220915
  Receipt Date: 20220915
  Transmission Date: 20221026
  Serious: No
  Sender: FDA-Public Use
  Company Number: US-SA-SAC20220912002025

PATIENT
  Age: 67 Year
  Sex: Male
  Weight: 99.33 kg

DRUGS (1)
  1. JEVTANA [Suspect]
     Active Substance: CABAZITAXEL
     Indication: Bladder cancer
     Dosage: UNK UNK, Q3W
     Route: 041
     Dates: start: 20220512

REACTIONS (2)
  - Weight decreased [Recovered/Resolved]
  - Product use in unapproved indication [Unknown]

NARRATIVE: CASE EVENT DATE: 20220512
